FAERS Safety Report 23510274 (Version 2)
Quarter: 2024Q1

REPORT INFORMATION
  Report Type: Report from Study
  Country: NL (occurrence: NL)
  Receive Date: 20240211
  Receipt Date: 20240307
  Transmission Date: 20240410
  Serious: Yes (Life-Threatening, Other)
  Sender: FDA-Public Use
  Company Number: NL-ABBVIE-5283207

PATIENT
  Age: 79 Year
  Sex: Male

DRUGS (9)
  1. CARBIDOPA\LEVODOPA [Suspect]
     Active Substance: CARBIDOPA\LEVODOPA
     Indication: Parkinson^s disease
     Dosage: MD:8.0 ML; CD:3.0 ML/H; ED:2.0 ML, ?REMAINS AT 16 HOURS
     Route: 050
     Dates: end: 20230606
  2. CARBIDOPA\LEVODOPA [Suspect]
     Active Substance: CARBIDOPA\LEVODOPA
     Route: 050
     Dates: start: 20220124
  3. CARBIDOPA\LEVODOPA [Suspect]
     Active Substance: CARBIDOPA\LEVODOPA
     Dosage: MD:8.0 ML; CD:3.1 ML/H; ED:2.0 ML?REMAINS AT 16 HOURS
     Route: 050
     Dates: start: 20230606, end: 20231023
  4. CARBIDOPA\LEVODOPA [Suspect]
     Active Substance: CARBIDOPA\LEVODOPA
     Dosage: MD:8.0 ML; CD:3.1 ML/H; ED:2.0 ML?REMAINS AT 16 HOURS
     Route: 050
     Dates: start: 20231023, end: 20240207
  5. CARBIDOPA\LEVODOPA [Suspect]
     Active Substance: CARBIDOPA\LEVODOPA
     Dosage: MD:3.0 ML; CD:3.1 ML/H; ED:2.0 ML?GOES TO 24 HOURS
     Route: 050
     Dates: start: 20240207
  6. BENSERAZIDE HYDROCHLORIDE\LEVODOPA [Concomitant]
     Active Substance: BENSERAZIDE HYDROCHLORIDE\LEVODOPA
     Indication: Product used for unknown indication
     Dosage: SLOW RELEASE?FREQUENCY TEXT: AS REQUIRED AT NIGHT
  7. MIDAZOLAM [Concomitant]
     Active Substance: MIDAZOLAM
     Indication: Product used for unknown indication
     Dosage: FREQUENCY TEXT: ADMINISTERED FROM TIME TO TIME
  8. RIVASTIGMINE [Concomitant]
     Active Substance: RIVASTIGMINE
     Indication: Product used for unknown indication
     Dosage: FORM STRENGTH: 9.5 MG
     Route: 062
  9. CARBIDOPA\LEVODOPA [Concomitant]
     Active Substance: CARBIDOPA\LEVODOPA
     Indication: Product used for unknown indication
     Dosage: FORM STRENGTH: 125 MG
     Route: 048

REACTIONS (19)
  - Terminal state [Not Recovered/Not Resolved]
  - Urinary tract infection [Recovered/Resolved]
  - Freezing phenomenon [Not Recovered/Not Resolved]
  - Gait disturbance [Recovered/Resolved]
  - Device dislocation [Not Recovered/Not Resolved]
  - Fatigue [Not Recovered/Not Resolved]
  - On and off phenomenon [Recovering/Resolving]
  - Tremor [Not Recovered/Not Resolved]
  - Muscle rigidity [Not Recovered/Not Resolved]
  - Cognitive disorder [Not Recovered/Not Resolved]
  - Pelvic fracture [Not Recovered/Not Resolved]
  - Aphasia [Not Recovered/Not Resolved]
  - Movement disorder [Not Recovered/Not Resolved]
  - Pyrexia [Not Recovered/Not Resolved]
  - Dyskinesia [Recovered/Resolved]
  - Bedridden [Not Recovered/Not Resolved]
  - Constipation [Recovered/Resolved]
  - Product use complaint [Not Recovered/Not Resolved]
  - Fall [Not Recovered/Not Resolved]

NARRATIVE: CASE EVENT DATE: 20230101
